FAERS Safety Report 11119355 (Version 1)
Quarter: 2015Q2

REPORT INFORMATION
  Report Type: Spontaneous
  Country: FR (occurrence: FR)
  Receive Date: 20150518
  Receipt Date: 20150518
  Transmission Date: 20150821
  Serious: Yes (Death)
  Sender: FDA-Public Use
  Company Number: FR-PFIZER INC-2015162775

PATIENT
  Age: 64 Year
  Sex: Female

DRUGS (7)
  1. DUPHALAC [Concomitant]
     Active Substance: LACTULOSE
  2. CORTANCYL [Concomitant]
     Active Substance: PREDNISONE
     Dosage: STRENGHT 20 MG
  3. IMOVANE [Concomitant]
     Active Substance: ZOPICLONE
     Dosage: STRENGHT 7.5 MG
  4. ALDACTONE [Concomitant]
     Active Substance: SPIRONOLACTONE
     Dosage: STRENGHT 50 MG
  5. INLYTA [Suspect]
     Active Substance: AXITINIB
     Indication: RENAL CANCER
     Dosage: 5 MG, 2X/DAY
     Route: 048
     Dates: start: 20150411, end: 20150415
  6. KETOPROFEN. [Concomitant]
     Active Substance: KETOPROFEN
  7. ACUPAN [Concomitant]
     Active Substance: NEFOPAM HYDROCHLORIDE

REACTIONS (1)
  - Haemorrhagic stroke [Fatal]

NARRATIVE: CASE EVENT DATE: 20150415
